FAERS Safety Report 6030579-8 (Version None)
Quarter: 2008Q4

REPORT INFORMATION
  Report Type: 
  Country: None (occurrence: None)
  Receive Date: 20081222
  Receipt Date: 20080915
  Transmission Date: 20090506
  Serious: No
  Sender: FDA-Public Use
  Company Number: US-WYE-H06015208

PATIENT
  Age: 59 Year
  Sex: Male
  Weight: 68.1 kg

DRUGS (8)
  1. PRISTIQ [Suspect]
     Indication: DEPRESSION
     Dosage: 50 MG 1X PER 1 DAY, ORAL
     Route: 048
     Dates: start: 20080801
  2. REMERON [Concomitant]
  3. SEROQUEL [Concomitant]
  4. LIPITOR [Concomitant]
  5. ADDERALL 10 [Concomitant]
  6. KLONOPIN [Concomitant]
  7. PERIACTIN [Concomitant]
  8. LYRICA [Concomitant]

REACTIONS (1)
  - GLOSSODYNIA [None]
